FAERS Safety Report 14019096 (Version 1)
Quarter: 2017Q3

REPORT INFORMATION
  Report Type: Report from Study
  Country: CO (occurrence: CO)
  Receive Date: 20170928
  Receipt Date: 20170928
  Transmission Date: 20171128
  Serious: Yes (Other)
  Sender: FDA-Public Use
  Company Number: CO-ROCHE-1997274

PATIENT
  Age: 52 Year
  Sex: Female

DRUGS (4)
  1. HERCEPTIN [Suspect]
     Active Substance: TRASTUZUMAB
     Indication: BREAST CANCER
     Dosage: 378 MG EVERY 221 DAYS
     Route: 042
     Dates: start: 20170215, end: 20170215
  2. HERCEPTIN [Suspect]
     Active Substance: TRASTUZUMAB
     Dosage: UNKNOWN
     Route: 042
     Dates: start: 20140715, end: 20150512
  3. KADCYLA [Suspect]
     Active Substance: ADO-TRASTUZUMAB EMTANSINE
     Indication: BREAST CANCER
     Dosage: 220 MG EVERY 21 DAYS
     Route: 042
     Dates: start: 20170315, end: 20170822
  4. HERCEPTIN [Suspect]
     Active Substance: TRASTUZUMAB
     Dosage: UNKNOWN
     Route: 042
     Dates: start: 20160517, end: 20160517

REACTIONS (1)
  - Hepatitis A [Recovering/Resolving]

NARRATIVE: CASE EVENT DATE: 20170919
